FAERS Safety Report 9437423 (Version 3)
Quarter: 2014Q3

REPORT INFORMATION
  Report Type: Report from Study
  Country: US (occurrence: US)
  Receive Date: 20130802
  Receipt Date: 20140717
  Transmission Date: 20150326
  Serious: Yes (Hospitalization)
  Sender: FDA-Public Use
  Company Number: US-JNJFOC-20130712821

PATIENT
  Age: 26 Year
  Sex: Female
  Weight: 57.7 kg

DRUGS (5)
  1. APAP [Suspect]
     Active Substance: ACETAMINOPHEN
     Route: 048
  2. ONDANSETRON [Suspect]
     Active Substance: ONDANSETRON
     Indication: INTENTIONAL SELF-INJURY
     Route: 048
  3. PSEUDOEPHEDRINE [Suspect]
     Active Substance: PSEUDOEPHEDRINE
     Indication: INTENTIONAL SELF-INJURY
     Route: 048
  4. APAP [Suspect]
     Active Substance: ACETAMINOPHEN
     Indication: INTENTIONAL SELF-INJURY
     Dosage: 40 TABLETS
     Route: 048
  5. NAPROXEN. [Suspect]
     Active Substance: NAPROXEN
     Indication: INTENTIONAL SELF-INJURY
     Route: 065

REACTIONS (3)
  - Intentional self-injury [Recovered/Resolved]
  - Vomiting [Recovered/Resolved]
  - Intentional overdose [Recovered/Resolved]

NARRATIVE: CASE EVENT DATE: 20130718
